FAERS Safety Report 9330563 (Version 1)
Quarter: 2013Q2

REPORT INFORMATION
  Report Type: Spontaneous
  Country: GR (occurrence: GR)
  Receive Date: 20130605
  Receipt Date: 20130605
  Transmission Date: 20140414
  Serious: Yes (Congenital Anomaly, Other)
  Sender: FDA-Public Use
  Company Number: PHHY2013GR054855

PATIENT
  Sex: Male
  Weight: 3.7 kg

DRUGS (3)
  1. VOLTAREN [Suspect]
     Indication: BACK PAIN
     Dosage: 1 DF, BID (EVERY 12 HOURS)
     Route: 064
  2. MESULID [Suspect]
     Indication: BACK PAIN
     Dosage: (TWICE DAILY)
     Route: 064
  3. MESULID [Suspect]
     Dosage: (ONCE EVERY OTHER DAY FOR ANOTHER THREE DAYS)
     Route: 064

REACTIONS (2)
  - Neonatal respiratory distress syndrome [Recovered/Resolved]
  - Congenital cyst [Recovering/Resolving]
